FAERS Safety Report 20492304 (Version 2)
Quarter: 2022Q1

REPORT INFORMATION
  Report Type: Spontaneous
  Country: TR (occurrence: TR)
  Receive Date: 20220218
  Receipt Date: 20220309
  Transmission Date: 20220423
  Serious: Yes (Other)
  Sender: FDA-Public Use
  Company Number: TR-009507513-2202TUR002651

PATIENT
  Age: 19 Year
  Sex: Male

DRUGS (3)
  1. POSACONAZOLE [Suspect]
     Active Substance: POSACONAZOLE
     Indication: Antifungal prophylaxis
     Route: 048
  2. TRETINOIN [Suspect]
     Active Substance: TRETINOIN
     Dosage: 45 MILLIGRAM/SQ. METER, QD
     Route: 048
  3. IDARUBICIN [Suspect]
     Active Substance: IDARUBICIN
     Dosage: 12 MILLIGRAM/SQ. METER
     Route: 042

REACTIONS (3)
  - Idiopathic intracranial hypertension [Unknown]
  - Papilloedema [Unknown]
  - Potentiating drug interaction [Unknown]
